FAERS Safety Report 13452140 (Version 1)
Quarter: 2017Q2

REPORT INFORMATION
  Report Type: Spontaneous
  Country: CN (occurrence: CN)
  Receive Date: 20170418
  Receipt Date: 20170418
  Transmission Date: 20170830
  Serious: Yes (Other)
  Sender: FDA-Public Use
  Company Number: CN-CELGENEUS-CHN-20170401104

PATIENT

DRUGS (2)
  1. ABRAXANE [Suspect]
     Active Substance: PACLITAXEL
     Indication: NON-SMALL CELL LUNG CANCER
     Dosage: 150 MG/M2
     Route: 041
  2. ABRAXANE [Suspect]
     Active Substance: PACLITAXEL
     Dosage: 100 MG/M2
     Route: 041

REACTIONS (13)
  - Rash [Unknown]
  - Decreased appetite [Unknown]
  - Diarrhoea [Unknown]
  - Infection [Unknown]
  - Fatigue [Unknown]
  - Stomatitis [Unknown]
  - Pulmonary fibrosis [Unknown]
  - Nausea [Unknown]
  - Paronychia [Unknown]
  - Leukopenia [Unknown]
  - Vomiting [Unknown]
  - Thrombocytopenia [Unknown]
  - Non-small cell lung cancer [Unknown]
